FAERS Safety Report 6334599-5 (Version None)
Quarter: 2009Q3

REPORT INFORMATION
  Report Type: 
  Country: None (occurrence: None)
  Receive Date: 20090831
  Receipt Date: 20090827
  Transmission Date: 20100115
  Serious: Yes (Death)
  Sender: FDA-Public Use
  Company Number: PHEH2009US08695

PATIENT
  Sex: Female
  Weight: 82.993 kg

DRUGS (10)
  1. CYCLOSPORINE [Suspect]
  2. EXJADE [Concomitant]
  3. PREDNISONE [Concomitant]
  4. CYTOXAN [Concomitant]
  5. IMMUNE GLOBULIN (HUMAN) [Concomitant]
  6. ABILIFY [Concomitant]
  7. TRAZODONE HCL [Concomitant]
  8. ZOCOR [Concomitant]
  9. DITROPAN [Concomitant]
  10. AMARYL [Concomitant]

REACTIONS (2)
  - DEATH [None]
  - DRUG INTOLERANCE [None]
